FAERS Safety Report 9293479 (Version 1)
Quarter: 2013Q2

REPORT INFORMATION
  Report Type: Spontaneous
  Country: CO (occurrence: CO)
  Receive Date: 20130516
  Receipt Date: 20130516
  Transmission Date: 20140414
  Serious: Yes (Hospitalization)
  Sender: FDA-Public Use
  Company Number: CO-GLAXOSMITHKLINE-A1023576A

PATIENT
  Sex: Male

DRUGS (12)
  1. VOTRIENT [Suspect]
     Indication: RENAL CANCER
     Dosage: 400MG TWICE PER DAY
     Route: 065
     Dates: start: 20120719
  2. LOSARTAN [Concomitant]
  3. TIROXIN SODIUM [Concomitant]
  4. UROCUAD [Concomitant]
  5. FLUOXETINE [Concomitant]
  6. VALTAN [Concomitant]
  7. SERTRALINE [Concomitant]
  8. N ACETYLCYSTEINE [Concomitant]
  9. AMLODIPINE [Concomitant]
  10. ESOMEPRAZOLE [Concomitant]
  11. OMEPRAZOLE [Concomitant]
  12. CITALOPRAM [Concomitant]

REACTIONS (16)
  - Myocardial infarction [Unknown]
  - Rectal abscess [Unknown]
  - Stomatitis [Unknown]
  - Hypertension [Unknown]
  - Hypothyroidism [Unknown]
  - Transaminases increased [Recovered/Resolved]
  - Diarrhoea [Unknown]
  - Anxiety [Unknown]
  - Alopecia [Unknown]
  - Anal fistula [Recovering/Resolving]
  - Left ventricular dysfunction [Unknown]
  - Abdominal distension [Unknown]
  - Mucosal inflammation [Unknown]
  - Oedema [Unknown]
  - Blood lactate dehydrogenase decreased [Unknown]
  - Condition aggravated [Unknown]
